FAERS Safety Report 5136966-4 (Version None)
Quarter: 2006Q4

REPORT INFORMATION
  Report Type: 
  Country: None (occurrence: None)
  Receive Date: 20061030
  Receipt Date: 20060626
  Transmission Date: 20070319
  Serious: Yes (Life-Threatening, Hospitalization)
  Sender: FDA-Public Use
  Company Number: US-SP-2006-01587

PATIENT
  Age: 40 Year
  Sex: Male

DRUGS (3)
  1. TUBERSOL [Suspect]
     Indication: TUBERCULIN TEST
     Route: 023
     Dates: start: 20060609
  2. TUBERSOL [Suspect]
     Route: 023
     Dates: start: 20060609
  3. ZITHROMAX [Concomitant]
     Dates: start: 20060612

REACTIONS (5)
  - GASTROINTESTINAL HAEMORRHAGE [None]
  - GUILLAIN-BARRE SYNDROME [None]
  - HEPATIC ENZYME INCREASED [None]
  - MUSCULAR WEAKNESS [None]
  - RESPIRATORY DEPRESSION [None]
